FAERS Safety Report 9741394 (Version 2)
Quarter: 2013Q4

REPORT INFORMATION
  Report Type: Not Available
  Country: US (occurrence: US)
  Receive Date: 20131209
  Receipt Date: 20131209
  Transmission Date: 20140711
  Serious: Yes (Death)
  Sender: FDA-Public Use
  Company Number: US-ONYX-2012-1523

PATIENT
  Age: 60 Year
  Sex: Male

DRUGS (16)
  1. KYPROLIS [Suspect]
     Indication: PLASMA CELL MYELOMA
     Route: 042
     Dates: start: 20121114
  2. DECADRON [Concomitant]
     Indication: PREMEDICATION
  3. NEURONTIN [Concomitant]
     Indication: NEUROPATHY PERIPHERAL
  4. NOVALOG [Concomitant]
     Indication: DIABETES MELLITUS
  5. LANTUS [Concomitant]
     Indication: DIABETES MELLITUS
  6. ACYCLOVIR [Concomitant]
     Indication: ANTIVIRAL PROPHYLAXIS
  7. ATIVAN [Concomitant]
     Indication: PROPHYLAXIS
  8. LORTAB [Concomitant]
     Indication: PAIN PROPHYLAXIS
  9. SKELAXIN [Concomitant]
     Indication: MUSCLE RELAXANT THERAPY
  10. LISINOPRIL [Concomitant]
     Indication: RENAL DISORDER
  11. LISINOPRIL [Concomitant]
     Indication: PROPHYLAXIS
  12. ALDACTONE [Concomitant]
     Indication: SWELLING
  13. LIPITOR [Concomitant]
     Indication: BLOOD CHOLESTEROL INCREASED
  14. WARFARIN [Concomitant]
     Indication: PORTAL SHUNT
  15. WARFARIN [Concomitant]
     Indication: THROMBOSIS PROPHYLAXIS
  16. ARANESP [Concomitant]
     Indication: ANAEMIA

REACTIONS (3)
  - Plasma cell myeloma [Fatal]
  - Neuropathy peripheral [Recovering/Resolving]
  - Blood glucose increased [Recovered/Resolved]
